FAERS Safety Report 11788303 (Version 7)
Quarter: 2017Q4

REPORT INFORMATION
  Report Type: Report from Study
  Country: US (occurrence: US)
  Receive Date: 20151201
  Receipt Date: 20171018
  Transmission Date: 20180320
  Serious: Yes (Death, Other)
  Sender: FDA-Public Use
  Company Number: US-ROCHE-1670402

PATIENT

DRUGS (4)
  1. IDELALISIB [Suspect]
     Active Substance: IDELALISIB
     Indication: CHRONIC LYMPHOCYTIC LEUKAEMIA
     Route: 048
  2. RITUXIMAB. [Suspect]
     Active Substance: RITUXIMAB
     Indication: CHRONIC LYMPHOCYTIC LEUKAEMIA
     Dosage: CYCLE 1
     Route: 042
  3. BENDAMUSTINE [Suspect]
     Active Substance: BENDAMUSTINE
     Indication: CHRONIC LYMPHOCYTIC LEUKAEMIA
     Dosage: DAY 1 AND 2 OF EACH CYCLE
     Route: 042
  4. RITUXIMAB. [Suspect]
     Active Substance: RITUXIMAB
     Dosage: CYCLE 2-6
     Route: 042

REACTIONS (39)
  - Pneumonia [Fatal]
  - Respiratory tract infection [Fatal]
  - Anaemia [Unknown]
  - Acute myocardial infarction [Unknown]
  - Anaphylactic reaction [Unknown]
  - Cardiac arrest [Unknown]
  - Acute kidney injury [Unknown]
  - Neutropenia [Unknown]
  - Cytomegalovirus infection [Unknown]
  - Gastrointestinal haemorrhage [Unknown]
  - Multiple organ dysfunction syndrome [Fatal]
  - Pyrexia [Fatal]
  - Urosepsis [Fatal]
  - Neutropenic sepsis [Unknown]
  - Cellulitis [Unknown]
  - Pneumocystis jirovecii pneumonia [Unknown]
  - Cardiac failure [Unknown]
  - Febrile neutropenia [Unknown]
  - Septic shock [Fatal]
  - Sepsis [Unknown]
  - Bronchitis [Unknown]
  - Squamous cell carcinoma [Unknown]
  - Haemolytic anaemia [Unknown]
  - Diarrhoea [Unknown]
  - Urinary tract infection [Unknown]
  - Pulmonary embolism [Unknown]
  - Pancreatitis [Unknown]
  - Aplastic anaemia [Unknown]
  - Cerebral haemorrhage [Unknown]
  - Pneumonitis [Unknown]
  - Lower respiratory tract infection [Unknown]
  - Cough [Unknown]
  - Aspartate aminotransferase increased [Unknown]
  - Cardiac failure congestive [Unknown]
  - Abdominal pain [Unknown]
  - Infection [Unknown]
  - Alanine aminotransferase increased [Unknown]
  - Drug-induced liver injury [Unknown]
  - Gastric haemorrhage [Unknown]
